FAERS Safety Report 4659462-7 (Version None)
Quarter: 2005Q2

REPORT INFORMATION
  Report Type: 
  Country: None (occurrence: None)
  Receive Date: 20050412
  Receipt Date: 20050131
  Transmission Date: 20051028
  Serious: No
  Sender: FDA-Public Use
  Company Number: 2004S1000259

PATIENT
  Age: 36 Year
  Sex: Male
  Weight: 90 kg

DRUGS (3)
  1. CUBICIN [Suspect]
     Indication: ABSCESS
     Dosage: 500 MG; Q24H; IV
     Route: 042
     Dates: start: 20041021
  2. CUBICIN [Suspect]
     Indication: OSTEOMYELITIS
     Dosage: 500 MG; Q24H; IV
     Route: 042
     Dates: start: 20041021
  3. CUBICIN [Suspect]
     Indication: STAPHYLOCOCCAL INFECTION
     Dosage: 500 MG; Q24H; IV
     Route: 042
     Dates: start: 20041021

REACTIONS (3)
  - ASTHENIA [None]
  - BLOOD CREATINE PHOSPHOKINASE INCREASED [None]
  - MYALGIA [None]
